FAERS Safety Report 7935904-6 (Version None)
Quarter: 2011Q4

REPORT INFORMATION
  Report Type: 
  Country: None (occurrence: None)
  Receive Date: 20111121
  Receipt Date: 20111101
  Transmission Date: 20120403
  Serious: Yes (Hospitalization, Congenital Anomaly)
  Sender: FDA-Public Use
  Company Number: METH20110026

PATIENT
  Weight: 2.68 kg

DRUGS (1)
  1. METHYLPREDNISOLONE [Suspect]
     Indication: MATERNAL EXPOSURE DURING PREGNANCY
     Dosage: 1 IN 1 D, TRANSPLACENTAL
     Route: 064

REACTIONS (3)
  - THROMBOCYTOPENIA NEONATAL [None]
  - MATERNAL DRUGS AFFECTING FOETUS [None]
  - ADRENAL SUPPRESSION [None]
